FAERS Safety Report 24288047 (Version 8)
Quarter: 2025Q2

REPORT INFORMATION
  Report Type: Report from Study
  Country: US (occurrence: US)
  Receive Date: 20240905
  Receipt Date: 20250626
  Transmission Date: 20250717
  Serious: No
  Sender: SUNOVION
  Company Number: US-SUMITOMO PHARMA SWITZERLAND GMBH-2024SPA000393

PATIENT

DRUGS (6)
  1. ORGOVYX [Suspect]
     Active Substance: RELUGOLIX
     Indication: Prostate cancer
     Route: 048
     Dates: start: 20240719, end: 20240719
  2. ORGOVYX [Suspect]
     Active Substance: RELUGOLIX
     Dosage: 120 MG, QD
     Route: 048
     Dates: start: 20240720
  3. ERLEADA [Concomitant]
     Active Substance: APALUTAMIDE
     Indication: Product used for unknown indication
     Route: 065
  4. ABIRATERONE [Concomitant]
     Active Substance: ABIRATERONE
     Route: 065
  5. VITAMIN D [Concomitant]
     Active Substance: VITAMIN D NOS
  6. MECLIZINE [Concomitant]
     Active Substance: MECLIZINE HYDROCHLORIDE
     Route: 065

REACTIONS (27)
  - Dysarthria [Recovered/Resolved]
  - Abnormal dreams [Recovering/Resolving]
  - Hypersomnia [Unknown]
  - Heart rate decreased [Unknown]
  - Blood pressure abnormal [Unknown]
  - Functional gastrointestinal disorder [Unknown]
  - Mood altered [Unknown]
  - Chest discomfort [Unknown]
  - Osteopenia [Unknown]
  - COVID-19 [Unknown]
  - Urinary incontinence [Unknown]
  - Memory impairment [Unknown]
  - Feeling abnormal [Unknown]
  - Anal incontinence [Unknown]
  - Confusional state [Unknown]
  - Osteoporosis [Unknown]
  - Depressed mood [Unknown]
  - Somnolence [Unknown]
  - Dizziness [Recovered/Resolved]
  - Asthenia [Unknown]
  - Headache [Unknown]
  - Fatigue [Unknown]
  - Back pain [Unknown]
  - Arthritis [Unknown]
  - Weight increased [Unknown]
  - Product dose omission issue [Unknown]
  - Product dose omission in error [Unknown]
